FAERS Safety Report 18479379 (Version 8)
Quarter: 2024Q4

REPORT INFORMATION
  Report Type: Other
  Country: GB (occurrence: GB)
  Receive Date: 20201109
  Receipt Date: 20241216
  Transmission Date: 20250115
  Serious: Yes (Hospitalization, Other)
  Sender: STRIDES
  Company Number: None

PATIENT
  Age: 73 Year
  Sex: Female
  Weight: 47 kg

DRUGS (136)
  1. PREDNISOLONE [Suspect]
     Active Substance: PREDNISOLONE
     Indication: Non-Hodgkin^s lymphoma
     Dosage: 50 MILLIGRAM, DATE OF MOST RECENT DOSE OF STUDY DRUG PRIOR (50 MG) TO AE 31/JUL/2020PREDNISONE
     Route: 048
     Dates: start: 20200701
  2. PREDNISOLONE [Suspect]
     Active Substance: PREDNISOLONE
     Indication: Diffuse large B-cell lymphoma
     Dosage: 100 MILLIGRAM, UNK
     Route: 048
     Dates: start: 20200712
  3. PREDNISOLONE [Suspect]
     Active Substance: PREDNISOLONE
     Indication: Follicular lymphoma
     Dosage: 50 MILLIGRAM, UNK
     Route: 048
     Dates: start: 20200731
  4. PREDNISOLONE [Suspect]
     Active Substance: PREDNISOLONE
     Dosage: 100 MILLIGRAM, MOST RECENT DOSE (50 MG) PRIOR TO BOTH AE: 02/AUG/2020MOST RECENT DOSE OF PREDNISOLON
     Route: 048
     Dates: start: 20200708
  5. PREDNISOLONE [Suspect]
     Active Substance: PREDNISOLONE
     Dosage: 50 MILLIGRAM (MOST RECENT DOSE PRIOR TO BOTH AE: 02/AUG/2020 MOST RECENT DOSE OF PREDNISOLONE PRIOR
     Route: 048
     Dates: start: 20200802
  6. DOXORUBICIN [Suspect]
     Active Substance: DOXORUBICIN
     Indication: Follicular lymphoma
     Dosage: UNK
     Route: 042
  7. DOXORUBICIN [Suspect]
     Active Substance: DOXORUBICIN
     Dosage: 50 MG/M2 ONCE IN A THREE WEEK (DATE OF THE MOST RECENT DOSE PRIOR TO FEBRILE NEUTROPENIA, ALANINE AM
     Route: 042
     Dates: start: 20200729
  8. DOXORUBICIN [Suspect]
     Active Substance: DOXORUBICIN
     Dosage: 70 MG/M2, ONCE IN A THREE WEEK (DOSE LAST STUDY DRUG ADMIN PRIOR AE IS 36 MG/M2 DOSE LAST STUDY DRUG
     Route: 042
     Dates: start: 20200708
  9. DOXORUBICIN [Suspect]
     Active Substance: DOXORUBICIN
     Dosage: 30 MG/M2 ONCE IN A THREE WEEK (START DATE OF MOST RECENT DOSE OF DOXORUBICIN ADMINISTRED PRIOR AE WA
     Route: 042
  10. DOXORUBICIN [Suspect]
     Active Substance: DOXORUBICIN
     Dosage: UNK
     Route: 042
  11. DOXORUBICIN [Suspect]
     Active Substance: DOXORUBICIN
     Dosage: UNK
     Route: 042
  12. DOXORUBICIN [Suspect]
     Active Substance: DOXORUBICIN
     Dosage: UNK
     Route: 042
  13. DOXORUBICIN [Suspect]
     Active Substance: DOXORUBICIN
     Dosage: 36 MG/M2, THRICE  A WEEK, INFUSION (START DATE OF MOST RECENT DOSE OF DOXORUBICIN ADMINISTRED PRIOR
     Route: 042
  14. DOXORUBICIN HYDROCHLORIDE [Suspect]
     Active Substance: DOXORUBICIN HYDROCHLORIDE
     Indication: Non-Hodgkin^s lymphoma
     Dosage: 70 MILLIGRAM/SQ. METER IN 35 ML, THRICE  A WEEK, DATE OF THE MOST RECENT DOSE PRIOR TO FEBRILE NEUTR
     Route: 042
     Dates: start: 20200708
  15. DOXORUBICIN HYDROCHLORIDE [Suspect]
     Active Substance: DOXORUBICIN HYDROCHLORIDE
     Indication: Diffuse large B-cell lymphoma
     Dosage: 70 MILLIGRAM/SQ. METER IN 35 ML, THRICE  A WEEK
     Route: 042
     Dates: start: 20200708
  16. DOXORUBICIN HYDROCHLORIDE [Suspect]
     Active Substance: DOXORUBICIN HYDROCHLORIDE
     Indication: Follicular lymphoma
     Dosage: 50 MILLIGRAM/SQ. METER, AT 3:00 PM AND ENDED AT 3:40 PM
     Route: 042
     Dates: start: 20200729
  17. DOXORUBICIN HYDROCHLORIDE [Suspect]
     Active Substance: DOXORUBICIN HYDROCHLORIDE
     Dosage: UNK
     Route: 065
  18. DOXORUBICIN HYDROCHLORIDE [Suspect]
     Active Substance: DOXORUBICIN HYDROCHLORIDE
     Dosage: UNK
     Route: 065
  19. DOXORUBICIN HYDROCHLORIDE [Suspect]
     Active Substance: DOXORUBICIN HYDROCHLORIDE
     Dosage: UNK
     Route: 065
  20. VINCRISTINE [Suspect]
     Active Substance: VINCRISTINE
     Indication: Non-Hodgkin^s lymphoma
     Dosage: 2 MILLIGRAM/SQ. METER ONCE IN A THREE WEEK IN 50 ML, THRICE  A WEEK, MOST RECENT DOSE PRIOR TO FEBRI
     Route: 042
     Dates: start: 20200708
  21. VINCRISTINE [Suspect]
     Active Substance: VINCRISTINE
     Indication: Diffuse large B-cell lymphoma
     Dosage: 6 MILLIGRAM/SQ. METER, ONCE A WEEK (MOST RECENT DOSE PRIOR TO FEBRILE NEUTROPENIA, ALANINE AMINO TRA
     Route: 042
     Dates: start: 20200708
  22. VINCRISTINE [Suspect]
     Active Substance: VINCRISTINE
     Indication: Follicular lymphoma
     Dosage: 1.4 MILLIGRAM/SQ. METER, ONCE IN A THREE WEEK AT 3:00 PM AND ENDED AT 3:55 PM (MOST RECENT DOSE PRIO
     Route: 042
     Dates: start: 20200729
  23. VINCRISTINE [Suspect]
     Active Substance: VINCRISTINE
     Dosage: UNK
     Route: 065
  24. VINCRISTINE [Suspect]
     Active Substance: VINCRISTINE
     Dosage: UNK
     Route: 065
  25. VINCRISTINE [Suspect]
     Active Substance: VINCRISTINE
     Dosage: 2 MILLIGRAM/SQ. METER IN 50 ML, THRICE  A WEEK, 2 MG/M2, EVERY 3 WEEKS, DATE OF MOST RECENT DOSE OF
     Route: 042
     Dates: start: 20200708
  26. VINCRISTINE [Suspect]
     Active Substance: VINCRISTINE
     Dosage: UNK
     Route: 042
  27. VINCRISTINE [Suspect]
     Active Substance: VINCRISTINE
     Dosage: 1 MG/M2, ONCE IN A THREE WEEK (MOST RECENT DOSE OF VINCRISTINE (TOTAL VOLUME: 51 ML) PRIOR TO CRS (F
     Route: 042
  28. VINCRISTINE [Suspect]
     Active Substance: VINCRISTINE
     Dosage: UNK
     Route: 042
  29. VINCRISTINE [Suspect]
     Active Substance: VINCRISTINE
     Dosage: UNK
     Route: 042
  30. CYCLOPHOSPHAMIDE [Suspect]
     Active Substance: CYCLOPHOSPHAMIDE
     Indication: Non-Hodgkin^s lymphoma
     Dosage: 1120 MILLIGRAM/SQ. METER IN 306 ML, THRICE  A WEEK; DATE OF THE MOST RECENT DOSE 750 MG/M2 PRIOR TO
     Route: 042
     Dates: start: 20200708
  31. CYCLOPHOSPHAMIDE [Suspect]
     Active Substance: CYCLOPHOSPHAMIDE
     Indication: Diffuse large B-cell lymphoma
     Dosage: 1120 MILLIGRAM/SQ. METER AT 3:00 PM AND ENDED AT 4:30 PM
     Route: 042
     Dates: start: 20200729
  32. CYCLOPHOSPHAMIDE [Suspect]
     Active Substance: CYCLOPHOSPHAMIDE
     Indication: Follicular lymphoma
     Dosage: 375 MILLIGRAM/SQ. METER
     Route: 042
  33. CYCLOPHOSPHAMIDE [Suspect]
     Active Substance: CYCLOPHOSPHAMIDE
     Dosage: UNK
     Route: 042
  34. CYCLOPHOSPHAMIDE [Suspect]
     Active Substance: CYCLOPHOSPHAMIDE
     Dosage: UNK
     Route: 042
  35. CYCLOPHOSPHAMIDE [Suspect]
     Active Substance: CYCLOPHOSPHAMIDE
     Dosage: 750 MG/M2,
     Route: 042
     Dates: start: 20200729
  36. CYCLOPHOSPHAMIDE [Suspect]
     Active Substance: CYCLOPHOSPHAMIDE
     Dosage: 750 MG/M2, ONCE IN A THREE WEEK  (DATE OF THE MOST RECENT DOSE PRIOR TO FEBRILE NEUTROPENIA, ALANINE
     Route: 042
  37. CYCLOPHOSPHAMIDE [Suspect]
     Active Substance: CYCLOPHOSPHAMIDE
     Dosage: UNK
     Route: 042
  38. CYCLOPHOSPHAMIDE [Suspect]
     Active Substance: CYCLOPHOSPHAMIDE
     Dosage: UNK
     Route: 042
  39. CYCLOPHOSPHAMIDE [Suspect]
     Active Substance: CYCLOPHOSPHAMIDE
     Dosage: 1120 MG/M2, THRICE  A WEEK (DOSE LAST STUDY DRUG ADMIN PRIOR AE IS 375 MG/M2DOSE LAST STUDY DRUG ADM
     Route: 042
     Dates: start: 20240708
  40. RITUXIMAB [Suspect]
     Active Substance: RITUXIMAB
     Indication: Non-Hodgkin^s lymphoma
     Dosage: 50 MILLIGRAM/SQ. METER IN 57.2 ML, THRICE  A WEEK (DATE OF MOST RECENT DOSE OF RITUXIMAB (375 MG/M2)
     Route: 042
     Dates: start: 20200708
  41. RITUXIMAB [Suspect]
     Active Substance: RITUXIMAB
     Indication: Diffuse large B-cell lymphoma
     Dosage: 375 MILLIGRAM/SQ. METER, ONCE IN A THREE WEEK AT 11:00 AM AND ENDED AT 11:28 AM (MOST RECENT DOSE (3
     Route: 042
     Dates: start: 20200729
  42. RITUXIMAB [Suspect]
     Active Substance: RITUXIMAB
     Indication: Follicular lymphoma
     Dosage: 375 MILLIGRAM/SQ. METER, AT 11:45 AM
     Route: 042
  43. RITUXIMAB [Suspect]
     Active Substance: RITUXIMAB
     Dosage: 450 MILLIGRAM/SQ. METER, ONCE IN A THREE WEEK, MOST RECENT DOSE OF RITUXIMAB PRIOR TO FEBRILE NEUTRO
     Route: 042
     Dates: start: 20200708
  44. RITUXIMAB [Suspect]
     Active Substance: RITUXIMAB
     Dosage: 50 MILLIGRAM/SQ. METER IN 57.2 ML, THRICE  A WEEK, 50 MG/M2 EVERY 3 WEEKS, DATE OF MOST RECENT DOSE
     Route: 042
     Dates: start: 20200708
  45. RITUXIMAB [Suspect]
     Active Substance: RITUXIMAB
     Dosage: UNK
     Route: 065
  46. RITUXIMAB [Suspect]
     Active Substance: RITUXIMAB
     Dosage: UNK
     Route: 065
  47. GLOFITAMAB [Suspect]
     Active Substance: GLOFITAMAB
     Indication: Follicular lymphoma
     Dosage: 2.5 MILLIGRAM, THRICE  A WEEK, MOST RECENT DOSE OF RO7082859, 0.5 MG (TOTAL VOLUME 25ML) PRIOR TO NE
     Route: 042
     Dates: start: 20200805
  48. GLOFITAMAB [Suspect]
     Active Substance: GLOFITAMAB
     Dosage: 0.5 MILLIGRAM ONCE IN A 3 WEEK (MOST RECENT DOSE OF RO7082859 (TOTAL VOLUME 25ML) PRIOR TO NEUTROPEN
     Route: 042
  49. GLOFITAMAB [Suspect]
     Active Substance: GLOFITAMAB
     Dosage: UNK
     Route: 065
  50. GLOFITAMAB [Suspect]
     Active Substance: GLOFITAMAB
     Dosage: UNK
     Route: 042
  51. GLOFITAMAB [Suspect]
     Active Substance: GLOFITAMAB
     Dosage: UNK
     Route: 042
  52. TOCILIZUMAB [Suspect]
     Active Substance: TOCILIZUMAB
     Indication: Cytokine release syndrome
     Dosage: UNK
     Route: 042
     Dates: start: 20200805, end: 20200805
  53. TOCILIZUMAB [Suspect]
     Active Substance: TOCILIZUMAB
     Indication: Pyrexia
     Dosage: 400 MILLIGRAM, PRN START DATE OF MOST RECENT DOSE OF STUDY DRUG PRIOR TO SAE 01/OCT/2020 2:56 PM;
     Route: 042
     Dates: start: 20201001
  54. TOCILIZUMAB [Suspect]
     Active Substance: TOCILIZUMAB
     Dosage: UNK , PRN
     Route: 042
     Dates: start: 20201002, end: 20201002
  55. TOCILIZUMAB [Suspect]
     Active Substance: TOCILIZUMAB
     Dosage: 401.6 MILLIGRAM, PRN (AS NECESSARY) (MOST RECENT DOSE OF TOCILIZUMAB (400 MG) PRIOR TO AE 03/SEP/202
     Route: 042
     Dates: start: 20200805
  56. TOCILIZUMAB [Suspect]
     Active Substance: TOCILIZUMAB
     Dosage: UNK
     Route: 042
  57. TOCILIZUMAB [Suspect]
     Active Substance: TOCILIZUMAB
     Dosage: UNK
     Route: 042
     Dates: start: 20200903, end: 20200903
  58. TOCILIZUMAB [Suspect]
     Active Substance: TOCILIZUMAB
     Dosage: UNK
     Route: 065
     Dates: start: 20201002
  59. TOCILIZUMAB [Suspect]
     Active Substance: TOCILIZUMAB
     Dosage: 400 MILLIGRAM, PRN MOST RECENT DOSE OF TOCILIZUMAB  PRIOR TO AE WAS ON 03/SEP/2020 07:56 PM TO 07:57
     Route: 042
     Dates: start: 20201001
  60. TOCILIZUMAB [Suspect]
     Active Substance: TOCILIZUMAB
     Dosage: UNK
     Route: 042
  61. TOCILIZUMAB [Suspect]
     Active Substance: TOCILIZUMAB
     Dosage: UNK
     Route: 042
  62. ACYCLOVIR [Concomitant]
     Active Substance: ACYCLOVIR
     Indication: Product used for unknown indication
     Dosage: UNK, FOR VIRAL PROTECTION
     Route: 065
     Dates: start: 20200608, end: 20200806
  63. ACYCLOVIR [Concomitant]
     Active Substance: ACYCLOVIR
     Dosage: 200 MILLIGRAM, UNK
     Route: 065
     Dates: start: 20200708
  64. PIPERACILLIN SODIUM\TAZOBACTAM SODIUM [Concomitant]
     Active Substance: PIPERACILLIN SODIUM\TAZOBACTAM SODIUM
     Indication: Cytokine release syndrome
     Dosage: 4.9 MILLIGRAM
     Route: 065
  65. PIPERACILLIN SODIUM\TAZOBACTAM SODIUM [Concomitant]
     Active Substance: PIPERACILLIN SODIUM\TAZOBACTAM SODIUM
     Dosage: 4.5 GRAM
     Route: 065
     Dates: start: 20200903
  66. PIPERACILLIN SODIUM\TAZOBACTAM SODIUM [Concomitant]
     Active Substance: PIPERACILLIN SODIUM\TAZOBACTAM SODIUM
     Dosage: UNK
     Route: 065
  67. ALLOPURINOL [Concomitant]
     Active Substance: ALLOPURINOL
     Indication: Tumour lysis syndrome
     Dosage: 300 MILLIGRAM, UNK
     Route: 065
     Dates: start: 20200710
  68. ALLOPURINOL [Concomitant]
     Active Substance: ALLOPURINOL
     Dosage: UNK, FOR TLS PROTECTION;
     Route: 065
     Dates: start: 20200720, end: 20200806
  69. FILGRASTIM [Concomitant]
     Active Substance: FILGRASTIM
     Indication: Prophylaxis
     Dosage: 300 MILLIGRAM, UNK (NEUTROPENIA PROPHYLAXIS)
     Route: 065
     Dates: start: 20200713
  70. FILGRASTIM [Concomitant]
     Active Substance: FILGRASTIM
     Indication: Neutropenia
     Dosage: UNK, ONGOING NO
     Route: 065
     Dates: start: 20200718, end: 20200718
  71. CALCIUM [Concomitant]
     Active Substance: CALCIUM
     Indication: Product used for unknown indication
     Dosage: UNK
     Route: 065
     Dates: start: 2018
  72. DOMPERIDONE [Concomitant]
     Active Substance: DOMPERIDONE
     Indication: Prophylaxis of nausea and vomiting
     Dosage: 10 MILLIGRAM, UNK
     Route: 065
     Dates: start: 20200708
  73. DOMPERIDONE [Concomitant]
     Active Substance: DOMPERIDONE
     Indication: Vomiting
     Dosage: UNK
     Route: 065
     Dates: start: 20201001
  74. DOMPERIDONE [Concomitant]
     Active Substance: DOMPERIDONE
     Dosage: UNK
     Route: 065
     Dates: start: 20200708
  75. HYDROCORTISONE [Concomitant]
     Active Substance: HYDROCORTISONE
     Indication: Cytokine release syndrome
     Dosage: UNK
     Route: 042
     Dates: start: 20200805, end: 20200805
  76. HYDROCORTISONE [Concomitant]
     Active Substance: HYDROCORTISONE
     Indication: Pyrexia
     Dosage: 100 MILLIGRAM
     Route: 042
  77. SODIUM CHLORIDE [Concomitant]
     Active Substance: SODIUM CHLORIDE
     Indication: Cytokine release syndrome
     Dosage: UNK
     Route: 065
     Dates: start: 20200805, end: 20200806
  78. AMOXICILLIN\CLAVULANATE POTASSIUM [Concomitant]
     Active Substance: AMOXICILLIN\CLAVULANATE POTASSIUM
     Indication: Cytokine release syndrome
     Dosage: UNK
     Route: 065
     Dates: start: 20200805, end: 20200806
  79. AMOXICILLIN\CLAVULANATE POTASSIUM [Concomitant]
     Active Substance: AMOXICILLIN\CLAVULANATE POTASSIUM
     Indication: Pyrexia
     Dosage: UNK
     Route: 065
     Dates: start: 20200719, end: 20200723
  80. AMOXICILLIN\CLAVULANATE POTASSIUM [Concomitant]
     Active Substance: AMOXICILLIN\CLAVULANATE POTASSIUM
     Dosage: UNK
     Route: 065
     Dates: start: 20200805, end: 20200810
  81. BENDAMUSTINE [Concomitant]
     Active Substance: BENDAMUSTINE
     Indication: Cytokine release syndrome
     Dosage: UNK
     Route: 065
  82. ACETAMINOPHEN [Concomitant]
     Active Substance: ACETAMINOPHEN
     Indication: Cytokine release syndrome
     Dosage: UNK
     Route: 065
     Dates: start: 20200715, end: 20200720
  83. ACETAMINOPHEN [Concomitant]
     Active Substance: ACETAMINOPHEN
     Indication: Pyrexia
     Dosage: 1000 MILLIGRAM
     Route: 065
     Dates: start: 20200729, end: 20200729
  84. ACETAMINOPHEN [Concomitant]
     Active Substance: ACETAMINOPHEN
     Indication: Prophylaxis
     Dosage: UNK
     Route: 042
     Dates: start: 20200805, end: 20200807
  85. ACETAMINOPHEN [Concomitant]
     Active Substance: ACETAMINOPHEN
     Indication: Pain in extremity
     Dosage: 1000 MILLIGRAM
     Route: 048
     Dates: start: 20200805, end: 20200805
  86. ACETAMINOPHEN [Concomitant]
     Active Substance: ACETAMINOPHEN
     Indication: Back pain
     Dosage: 1000 MILLIGRAM
     Route: 048
     Dates: start: 20200808, end: 20200808
  87. ACETAMINOPHEN [Concomitant]
     Active Substance: ACETAMINOPHEN
     Indication: Groin pain
     Dosage: 1000 MILLIGRAM
     Route: 048
     Dates: start: 20201014, end: 20201014
  88. ACETAMINOPHEN [Concomitant]
     Active Substance: ACETAMINOPHEN
     Dosage: UNK
     Route: 042
     Dates: start: 20200805, end: 20200807
  89. ACETAMINOPHEN [Concomitant]
     Active Substance: ACETAMINOPHEN
     Dosage: 1000 MILLIGRAM
     Route: 048
     Dates: start: 20200902, end: 20200902
  90. ACETAMINOPHEN [Concomitant]
     Active Substance: ACETAMINOPHEN
     Dosage: 1000 MILLIGRAM
     Route: 048
     Dates: start: 20200923, end: 20200923
  91. ACETAMINOPHEN [Concomitant]
     Active Substance: ACETAMINOPHEN
     Dosage: 1000 MILLIGRAM
     Route: 048
     Dates: start: 20200930, end: 20200930
  92. ACETAMINOPHEN [Concomitant]
     Active Substance: ACETAMINOPHEN
     Dosage: 1000 MILLIGRAM
     Route: 048
     Dates: start: 20201111, end: 20201111
  93. ACETAMINOPHEN [Concomitant]
     Active Substance: ACETAMINOPHEN
     Dosage: 1000 MILLIGRAM
     Route: 048
     Dates: start: 20200826, end: 20200826
  94. ACETAMINOPHEN [Concomitant]
     Active Substance: ACETAMINOPHEN
     Dosage: 1000 MILLIGRAM
     Route: 048
     Dates: start: 20201104, end: 20201104
  95. ACETAMINOPHEN [Concomitant]
     Active Substance: ACETAMINOPHEN
     Dosage: UNK
     Route: 065
     Dates: start: 20201001, end: 20201001
  96. ACETAMINOPHEN [Concomitant]
     Active Substance: ACETAMINOPHEN
     Dosage: UNK
     Route: 065
     Dates: start: 20200715, end: 20200720
  97. ACETAMINOPHEN [Concomitant]
     Active Substance: ACETAMINOPHEN
     Dosage: UNK (ONGOING: YES, FOR ARM PAIN.)
     Route: 065
     Dates: start: 20201001, end: 20201001
  98. ACETAMINOPHEN [Concomitant]
     Active Substance: ACETAMINOPHEN
     Dosage: UNK
     Route: 048
     Dates: start: 20200708, end: 20200708
  99. ACETAMINOPHEN [Concomitant]
     Active Substance: ACETAMINOPHEN
     Dosage: 1000 MILLIGRAM
     Route: 048
     Dates: start: 20200708, end: 20200708
  100. CHLORPHENIRAMINE MALEATE [Concomitant]
     Active Substance: CHLORPHENIRAMINE MALEATE
     Indication: Cytokine release syndrome
     Dosage: 10 MILLIGRAM (NEXT SINGLE DOSE ON: 08/AUG/2020)
     Route: 042
     Dates: start: 20200805, end: 20200805
  101. CHLORPHENIRAMINE MALEATE [Concomitant]
     Active Substance: CHLORPHENIRAMINE MALEATE
     Indication: Prophylaxis
     Dosage: 10 MILLIGRAM, NEXT SINGLE DOSE ON: 08/AUG/2020;
     Route: 042
     Dates: start: 20200808, end: 20200808
  102. CHLORPHENIRAMINE MALEATE [Concomitant]
     Active Substance: CHLORPHENIRAMINE MALEATE
     Dosage: 10 MILLIGRAM, NEXT SINGLE DOSE ON: 08/AUG/2020;
     Route: 042
     Dates: start: 20200805, end: 20200805
  103. CHLORPHENIRAMINE MALEATE [Concomitant]
     Active Substance: CHLORPHENIRAMINE MALEATE
     Dosage: 10 MILLIGRAM (GIVEN FOR PROPHYLAXIS IS YES)
     Route: 042
     Dates: start: 20200729, end: 20200829
  104. CHLORPHENIRAMINE MALEATE [Concomitant]
     Active Substance: CHLORPHENIRAMINE MALEATE
     Dosage: 10 MILLIGRAM, NEXT SINGLE DOSE ON: 08/AUG/2020;
     Route: 042
     Dates: start: 20200902, end: 20200902
  105. CHLORPHENIRAMINE MALEATE [Concomitant]
     Active Substance: CHLORPHENIRAMINE MALEATE
     Dosage: 10 MILLIGRAM (GIVEN FOR PROPHYLAXIS IS YES )
     Route: 042
     Dates: start: 20200826, end: 20200826
  106. CHLORPHENIRAMINE MALEATE [Concomitant]
     Active Substance: CHLORPHENIRAMINE MALEATE
     Dosage: 10 MILLIGRAM (GIVEN FOR PROPHYLAXIS IS YES)
     Route: 042
     Dates: start: 20200729, end: 20200729
  107. CHLORPHENIRAMINE MALEATE [Concomitant]
     Active Substance: CHLORPHENIRAMINE MALEATE
     Dosage: 10 MILLIGRAM (GIVEN FOR PROPHYLAXIS IS YES )
     Route: 042
     Dates: start: 20200923, end: 20200923
  108. CHLORPHENIRAMINE MALEATE [Concomitant]
     Active Substance: CHLORPHENIRAMINE MALEATE
     Dosage: 10 MILLIGRAM
     Route: 042
     Dates: start: 20200729, end: 20200829
  109. CHLORPHENIRAMINE MALEATE [Concomitant]
     Active Substance: CHLORPHENIRAMINE MALEATE
     Dosage: 10 MILLIGRAM
     Route: 042
     Dates: start: 20201014, end: 20201014
  110. CHLORPHENIRAMINE MALEATE [Concomitant]
     Active Substance: CHLORPHENIRAMINE MALEATE
     Dosage: 10 MILLIGRAM
     Route: 042
     Dates: start: 20201111, end: 20201111
  111. CHLORPHENIRAMINE MALEATE [Concomitant]
     Active Substance: CHLORPHENIRAMINE MALEATE
     Dosage: 10 MILLIGRAM
     Route: 042
     Dates: start: 20200930, end: 20200930
  112. CHLORPHENIRAMINE MALEATE [Concomitant]
     Active Substance: CHLORPHENIRAMINE MALEATE
     Dosage: 10 MILLIGRAM
     Route: 042
     Dates: start: 20201104, end: 20201104
  113. CHLORPHENIRAMINE MALEATE [Concomitant]
     Active Substance: CHLORPHENIRAMINE MALEATE
     Dosage: UNK
     Route: 042
     Dates: start: 20201111, end: 20201111
  114. CHLORPHENIRAMINE MALEATE [Concomitant]
     Active Substance: CHLORPHENIRAMINE MALEATE
     Dosage: 10 MILLIGRAM, INTRAVENOUS (NOT OTHERWISE SPECIFIED)
     Route: 042
     Dates: start: 20200708, end: 20200708
  115. CHLORPHENIRAMINE MALEATE [Concomitant]
     Active Substance: CHLORPHENIRAMINE MALEATE
     Dosage: 10 MILLIGRAM, INTRAVENOUS (NOT OTHERWISE SPECIFIED)
     Route: 042
     Dates: start: 20200708, end: 20200708
  116. PIPERACILLIN SODIUM\TAZOBACTAM SODIUM [Concomitant]
     Active Substance: PIPERACILLIN SODIUM\TAZOBACTAM SODIUM
     Indication: Pyrexia
     Dosage: UNK
     Route: 065
     Dates: start: 20200715, end: 20200719
  117. CALCIUM CARBONATE\CHOLECALCIFEROL [Concomitant]
     Active Substance: CALCIUM CARBONATE\CHOLECALCIFEROL
     Indication: Osteoporosis
     Dosage: UNK
     Route: 065
     Dates: start: 2018
  118. DEXAMETHASONE [Concomitant]
     Active Substance: DEXAMETHASONE
     Indication: Product used for unknown indication
     Dosage: 20 MILLIGRAM (GIVEN FOR PROPHYLAXIS IS YES)
     Route: 042
     Dates: start: 20200930, end: 20200930
  119. ENOXAPARIN [Concomitant]
     Active Substance: ENOXAPARIN
     Indication: Embolism
     Dosage: UNK
     Route: 065
     Dates: start: 20200728, end: 20200826
  120. CALCIUM CHLORIDE\POTASSIUM CHLORIDE\SODIUM CHLORIDE\SODIUM LACTATE [Concomitant]
     Active Substance: CALCIUM CHLORIDE\POTASSIUM CHLORIDE\SODIUM CHLORIDE\SODIUM LACTATE
     Indication: Pyrexia
     Dosage: UNK
     Route: 065
     Dates: start: 20200715, end: 20200716
  121. IBUPROFEN [Concomitant]
     Active Substance: IBUPROFEN
     Indication: Back pain
     Dosage: UNK
     Route: 065
     Dates: start: 20201003, end: 20201011
  122. IBUPROFEN [Concomitant]
     Active Substance: IBUPROFEN
     Indication: Groin pain
     Dosage: UNK
     Route: 065
     Dates: start: 20201003, end: 20201011
  123. IBUPROFEN [Concomitant]
     Active Substance: IBUPROFEN
     Indication: Pain in extremity
     Dosage: UNK
     Route: 065
     Dates: start: 20201003, end: 20201011
  124. LANSOPRAZOLE [Concomitant]
     Active Substance: LANSOPRAZOLE
     Indication: Gastrointestinal disorder prophylaxis
     Dosage: UNK
     Route: 065
     Dates: start: 202003
  125. MOMETASONE [Concomitant]
     Active Substance: MOMETASONE
     Indication: Product used for unknown indication
     Dosage: UNK
     Route: 065
     Dates: start: 202003
  126. MORPHINE [Concomitant]
     Active Substance: MORPHINE
     Indication: Back pain
     Dosage: UNK
     Route: 065
     Dates: start: 20201001, end: 20201007
  127. MORPHINE [Concomitant]
     Active Substance: MORPHINE
     Indication: Groin pain
     Dosage: UNK
     Route: 065
     Dates: start: 20201001, end: 20201007
  128. MORPHINE SULFATE [Concomitant]
     Active Substance: MORPHINE SULFATE
     Indication: Pain in extremity
     Dosage: UNK
     Route: 048
     Dates: start: 20201001, end: 20201007
  129. MORPHINE SULFATE [Concomitant]
     Active Substance: MORPHINE SULFATE
     Indication: Groin pain
     Dosage: UNK
     Route: 048
     Dates: start: 20201007, end: 20201010
  130. ONDANSETRON [Concomitant]
     Active Substance: ONDANSETRON
     Indication: Prophylaxis of nausea and vomiting
     Dosage: UNK
     Route: 065
     Dates: start: 20201001
  131. ONDANSETRON [Concomitant]
     Active Substance: ONDANSETRON
     Indication: Vomiting
     Dosage: UNK
     Route: 065
     Dates: start: 20200708
  132. OXYGEN [Concomitant]
     Active Substance: OXYGEN
     Indication: Hypoxia
     Dosage: UNK
     Route: 065
     Dates: start: 20200903, end: 20200903
  133. OXYGEN [Concomitant]
     Active Substance: OXYGEN
     Indication: Cytokine release syndrome
     Dosage: UNK
     Route: 065
     Dates: start: 20201001, end: 20201002
  134. RASBURICASE [Concomitant]
     Active Substance: RASBURICASE
     Indication: Prophylaxis
     Dosage: UNK
     Route: 065
     Dates: start: 20200708, end: 20200709
  135. RIVAROXABAN [Concomitant]
     Active Substance: RIVAROXABAN
     Indication: Embolism
     Dosage: UNK
     Route: 065
     Dates: start: 20200826, end: 20210129
  136. RIVAROXABAN [Concomitant]
     Active Substance: RIVAROXABAN
     Indication: Embolism

REACTIONS (10)
  - Cytokine release syndrome [Recovered/Resolved]
  - Cytokine release syndrome [Recovered/Resolved]
  - Febrile neutropenia [Recovered/Resolved]
  - Alanine aminotransferase increased [Recovered/Resolved]
  - Neutropenia [Recovered/Resolved]
  - Pyrexia [Recovered/Resolved]
  - Neutropenia [Recovered/Resolved]
  - Neutropenia [Recovered/Resolved]
  - Product use in unapproved indication [Unknown]
  - Off label use [Unknown]

NARRATIVE: CASE EVENT DATE: 20200714
